FAERS Safety Report 21039834 (Version 1)
Quarter: 2022Q3

REPORT INFORMATION
  Report Type: Spontaneous
  Country: CN (occurrence: CN)
  Receive Date: 20220704
  Receipt Date: 20220704
  Transmission Date: 20221027
  Serious: Yes (Other)
  Sender: FDA-Public Use
  Company Number: CN-PFIZER INC-PV202200013573

PATIENT
  Age: 24 Year
  Sex: Male

DRUGS (6)
  1. METHYLPREDNISOLONE SODIUM SUCCINATE [Suspect]
     Active Substance: METHYLPREDNISOLONE SODIUM SUCCINATE
     Indication: Orchitis
     Dosage: 40 MG, 1X/DAY
     Route: 041
     Dates: start: 20220610, end: 20220610
  2. SODIUM CHLORIDE [Concomitant]
     Active Substance: SODIUM CHLORIDE
     Indication: Vehicle solution use
     Dosage: 250 ML, 1X/DAY
     Route: 041
     Dates: start: 20220610, end: 20220610
  3. DEXTROSE [Concomitant]
     Active Substance: DEXTROSE
     Dosage: 250 ML, 1X/DAY
     Dates: start: 20220610, end: 20220610
  4. VITAMIN C [Concomitant]
     Active Substance: ASCORBIC ACID
     Dosage: 2 G, 1X/DAY
     Dates: start: 20220610, end: 20220610
  5. VITAMIN B6 [Concomitant]
     Active Substance: PYRIDOXINE HYDROCHLORIDE
     Dosage: 0.2 G, 1X/DAY
     Dates: start: 20220610, end: 20220610
  6. LEVOFLOXACIN [Concomitant]
     Active Substance: LEVOFLOXACIN
     Dosage: 0.5 G, 1X/DAY (60 DROPS/MIN)
     Route: 041
     Dates: start: 20220610, end: 20220610

REACTIONS (2)
  - Cough [Recovered/Resolved]
  - Off label use [Unknown]

NARRATIVE: CASE EVENT DATE: 20220610
